FAERS Safety Report 12188375 (Version 1)
Quarter: 2016Q1

REPORT INFORMATION
  Report Type: Spontaneous
  Country: US (occurrence: US)
  Receive Date: 20160317
  Receipt Date: 20160317
  Transmission Date: 20160526
  Serious: No
  Sender: FDA-Public Use
  Company Number: US-GALDERMA-US15000298

PATIENT
  Age: 26 Year
  Sex: Female

DRUGS (5)
  1. VALACYCLOVIR [Concomitant]
     Active Substance: VALACYCLOVIR HYDROCHLORIDE
     Indication: PRODUCT USED FOR UNKNOWN INDICATION
  2. AQUAPHOR MOISTURIZING LOTION [Concomitant]
     Route: 061
  3. AMBI (HYDROQUINONE 2%) FADE CREAM [Concomitant]
     Indication: CHLOASMA
     Dosage: 2%
     Route: 061
     Dates: start: 201411, end: 201411
  4. NUVARING [Concomitant]
     Active Substance: ETHINYL ESTRADIOL\ETONOGESTREL
     Indication: PRODUCT USED FOR UNKNOWN INDICATION
     Dates: start: 2007
  5. TRI-LUMA [Suspect]
     Active Substance: FLUOCINOLONE ACETONIDE\HYDROQUINONE\TRETINOIN
     Indication: CHLOASMA
     Route: 061
     Dates: start: 201411, end: 201411

REACTIONS (9)
  - Application site exfoliation [Not Recovered/Not Resolved]
  - Erythema [Recovered/Resolved]
  - Skin irritation [Not Recovered/Not Resolved]
  - Neoplasm skin [Recovered/Resolved]
  - Incorrect product storage [Recovered/Resolved]
  - Dry skin [Not Recovered/Not Resolved]
  - Pruritus [Not Recovered/Not Resolved]
  - Drug ineffective [Not Recovered/Not Resolved]
  - Skin fragility [Not Recovered/Not Resolved]

NARRATIVE: CASE EVENT DATE: 201411
